FAERS Safety Report 7796076-4 (Version None)
Quarter: 2011Q4

REPORT INFORMATION
  Report Type: 
  Country: None (occurrence: None)
  Receive Date: 20111004
  Receipt Date: 20110922
  Transmission Date: 20120403
  Serious: No
  Sender: FDA-Public Use
  Company Number: VE-ELI_LILLY_AND_COMPANY-VE201109007518

PATIENT
  Age: 73 Year
  Sex: Male

DRUGS (2)
  1. GLYBURIDE [Concomitant]
     Indication: BLOOD GLUCOSE ABNORMAL
  2. CIALIS [Suspect]
     Indication: ERECTILE DYSFUNCTION
     Dosage: 20 MG, UNKNOWN
     Dates: start: 20110804

REACTIONS (4)
  - PHOTOPSIA [None]
  - HEADACHE [None]
  - TINNITUS [None]
  - RHINITIS [None]
